FAERS Safety Report 17422291 (Version 1)
Quarter: 2020Q1

REPORT INFORMATION
  Report Type: Spontaneous
  Country: US (occurrence: US)
  Receive Date: 20200214
  Receipt Date: 20200214
  Transmission Date: 20200409
  Serious: Yes (Other)
  Sender: FDA-Public Use
  Company Number: US-009507513-2002USA003941

PATIENT
  Age: 39 Year
  Sex: Female

DRUGS (3)
  1. DOXORUBICIN [Concomitant]
     Active Substance: DOXORUBICIN
     Indication: CHEMOTHERAPY
  2. CYCLOPHOSPHAMIDE. [Concomitant]
     Active Substance: CYCLOPHOSPHAMIDE
     Indication: CHEMOTHERAPY
  3. EMEND [Suspect]
     Active Substance: APREPITANT

REACTIONS (1)
  - Hypersensitivity [Recovered/Resolved]
